FAERS Safety Report 4436810-4 (Version None)
Quarter: 2004Q3

REPORT INFORMATION
  Report Type: 
  Country: None (occurrence: None)
  Receive Date: 20040830
  Receipt Date: 20040823
  Transmission Date: 20050211
  Serious: Yes (Hospitalization)
  Sender: FDA-Public Use
  Company Number: US-BRISTOL-MYERS SQUIBB COMPANY-12680328

PATIENT
  Age: 75 Year
  Sex: Female
  Weight: 49 kg

DRUGS (4)
  1. CETUXIMAB [Suspect]
     Indication: COLORECTAL CANCER METASTATIC
     Dosage: INITIAL TX DATE: 17-MAR-04.
     Route: 042
     Dates: start: 20040505, end: 20040505
  2. IRINOTECAN [Suspect]
     Indication: COLORECTAL CANCER METASTATIC
     Dosage: INITIAL TX DATE: 17-MAR-04.
     Route: 042
     Dates: start: 20040428, end: 20040428
  3. FLUOROURACIL [Suspect]
     Indication: COLORECTAL CANCER METASTATIC
     Dosage: INITIAL TX DATE: 17-MAR-04.
     Route: 042
     Dates: start: 20040428, end: 20040428
  4. LEUCOVORIN CALCIUM [Suspect]
     Indication: COLORECTAL CANCER METASTATIC
     Dosage: INITIAL TX DATE: 17-MAR-04.
     Route: 042
     Dates: start: 20040428, end: 20040428

REACTIONS (3)
  - DEHYDRATION [None]
  - DIARRHOEA [None]
  - PERIPHERAL MOTOR NEUROPATHY [None]
